FAERS Safety Report 6529482-6 (Version None)
Quarter: 2010Q1

REPORT INFORMATION
  Report Type: 
  Country: None (occurrence: None)
  Receive Date: 20100107
  Receipt Date: 20091221
  Transmission Date: 20100710
  Serious: Yes (Hospitalization)
  Sender: FDA-Public Use
  Company Number: PHHY2009DE55610

PATIENT
  Sex: Female

DRUGS (7)
  1. CARBAMAZEPINE [Suspect]
     Indication: ALCOHOLISM
     Dosage: 200 MG, QID
     Route: 048
     Dates: start: 20090905, end: 20090906
  2. TIAPRIDEX [Concomitant]
     Dosage: 200 MG, QID
     Route: 048
     Dates: start: 20090905, end: 20090906
  3. DELIX PLUS [Concomitant]
     Dosage: DELIX 2.5 PLUS/-5 PLUS, ONCE DAILY
  4. ATENOLOL [Concomitant]
     Dosage: 75 MG/DAY
     Route: 048
  5. SIMVASTATIN [Concomitant]
     Dosage: 10 MG/DAY
     Route: 048
  6. VESICARE [Concomitant]
     Dosage: 5 MG/DAY
     Route: 048
  7. PANTOPRAZOLE [Concomitant]
     Dosage: 20 MG/DAY

REACTIONS (9)
  - ANTICONVULSANT DRUG LEVEL INCREASED [None]
  - APNOEA [None]
  - DRUG TOXICITY [None]
  - EYE MOVEMENT DISORDER [None]
  - HYPONATRAEMIA [None]
  - HYPOTENSION [None]
  - NAUSEA [None]
  - SOMNOLENCE [None]
  - VOMITING [None]
